FAERS Safety Report 9981386 (Version 1)
Quarter: 2014Q1

REPORT INFORMATION
  Report Type: Spontaneous
  Country: NO (occurrence: NO)
  Receive Date: 20140307
  Receipt Date: 20140307
  Transmission Date: 20141002
  Serious: Yes (Hospitalization)
  Sender: FDA-Public Use
  Company Number: NO-JNJFOC-20140301168

PATIENT
  Age: 42 Year
  Sex: Male

DRUGS (4)
  1. XARELTO [Suspect]
     Indication: DEEP VEIN THROMBOSIS
     Dosage: CUMULATIVE DOSE TO FIRST REACTION: 14600 MG
     Route: 048
     Dates: start: 2012, end: 20140121
  2. XARELTO [Suspect]
     Indication: PULMONARY EMBOLISM
     Dosage: CUMULATIVE DOSE TO FIRST REACTION: 14600 MG
     Route: 048
     Dates: start: 2012, end: 20140121
  3. NEBIDO [Concomitant]
     Route: 040
     Dates: start: 2013, end: 20140121
  4. TESTOGEL [Concomitant]
     Route: 062
     Dates: start: 2013, end: 20140121

REACTIONS (2)
  - Deep vein thrombosis [Recovering/Resolving]
  - Drug ineffective [Recovering/Resolving]
